FAERS Safety Report 11215656 (Version 6)
Quarter: 2019Q2

REPORT INFORMATION
  Report Type: Spontaneous
  Country: US (occurrence: US)
  Receive Date: 20150624
  Receipt Date: 20190415
  Transmission Date: 20190711
  Serious: Yes (Other)
  Sender: FDA-Public Use
  Company Number: US-PFIZER INC-2015207199

PATIENT
  Age: 64 Year
  Sex: Female
  Weight: 63.49 kg

DRUGS (24)
  1. HYDROCHLOROTHIAZIDE. [Concomitant]
     Active Substance: HYDROCHLOROTHIAZIDE
     Indication: BLOOD PRESSURE ABNORMAL
     Dosage: 25 MG, 1X/DAY
  2. LYRICA [Suspect]
     Active Substance: PREGABALIN
     Indication: HEADACHE
     Dosage: 300 MG, 2X/DAY
     Route: 048
  3. PROTONIX [Concomitant]
     Active Substance: PANTOPRAZOLE SODIUM
     Dosage: 40 MG, UNK
  4. LIPITOR [Concomitant]
     Active Substance: ATORVASTATIN CALCIUM
     Dosage: 20 MG, UNK
  5. ASPIRIN. [Concomitant]
     Active Substance: ASPIRIN
     Dosage: 325 MG, UNK
  6. XANAX [Concomitant]
     Active Substance: ALPRAZOLAM
     Dosage: 1 MG, UNK
  7. TYLENOL WITH CODEINE [Concomitant]
     Active Substance: ACETAMINOPHEN\CODEINE PHOSPHATE
     Indication: PAIN
     Dosage: 2 DF [ACETAMINOPHEN:300 MG]/[CODEINE 30 MG] EVERY 6 HOURS AS NEEDED
     Route: 048
  8. PRILOSEC [Concomitant]
     Active Substance: OMEPRAZOLE MAGNESIUM
     Dosage: 20 MG, UNK
  9. PERCOCET 10 [Concomitant]
     Dosage: 1 DF, UNK (OXYCODONE 10MG, ACETAMINOPHEN 325MG)
  10. CARAFATE [Concomitant]
     Active Substance: SUCRALFATE
     Dosage: 1 G, UNK
  11. MIRALAX [Concomitant]
     Active Substance: POLYETHYLENE GLYCOL 3350
     Dosage: 17 (ILLEGIBLE)
  12. ZOFRAN ODT [Concomitant]
     Active Substance: ONDANSETRON HYDROCHLORIDE
     Dosage: 4 MG, UNK
  13. FERROUS SULFATE. [Concomitant]
     Active Substance: FERROUS SULFATE
     Dosage: UNK
  14. ADVAIR HFA [Concomitant]
     Active Substance: FLUTICASONE PROPIONATE\SALMETEROL XINAFOATE
     Dosage: 1 DF, UNK (FLUTICASONE PROPIONATE 115 MCG AND SALMETEROL 21 MCG)
  15. LYRICA [Suspect]
     Active Substance: PREGABALIN
     Indication: FIBROMYALGIA
  16. BACTROBAN [Concomitant]
     Active Substance: MUPIROCIN\MUPIROCIN CALCIUM
     Dosage: 2 %, UNK
     Route: 045
  17. PROVENTIL VENTOLIN [Concomitant]
     Dosage: UNK
  18. BENTYL [Concomitant]
     Active Substance: DICYCLOMINE HYDROCHLORIDE
     Dosage: 20 MG, UNK
  19. LYRICA [Suspect]
     Active Substance: PREGABALIN
     Indication: ARTHRITIS
  20. SYNTHROID [Concomitant]
     Active Substance: LEVOTHYROXINE SODIUM
     Dosage: UNK
  21. DELTASONE [Concomitant]
     Active Substance: PREDNISONE
     Dosage: 10 MG, UNK
  22. TENORMIN [Concomitant]
     Active Substance: ATENOLOL
     Dosage: 50 MG, UNK
  23. HYDRODIURIL [Concomitant]
     Active Substance: HYDROCHLOROTHIAZIDE
     Dosage: 20 MG, UNK
  24. VENTOLIN HFA [Concomitant]
     Active Substance: ALBUTEROL SULFATE
     Dosage: UNK

REACTIONS (9)
  - Back pain [Unknown]
  - Arthralgia [Unknown]
  - Abdominal pain upper [Unknown]
  - Brain neoplasm [Unknown]
  - Weight increased [Unknown]
  - Fatigue [Unknown]
  - Hypercholesterolaemia [Unknown]
  - Gastric ulcer [Unknown]
  - Pain in extremity [Unknown]
